FAERS Safety Report 7818625-X (Version None)
Quarter: 2011Q4

REPORT INFORMATION
  Report Type: 
  Country: None (occurrence: None)
  Receive Date: 20111017
  Receipt Date: 20111011
  Transmission Date: 20120403
  Serious: Yes (Life-Threatening, Other)
  Sender: FDA-Public Use
  Company Number: US-ASTRAZENECA-2011SE50420

PATIENT
  Age: 48 Year
  Sex: Female

DRUGS (10)
  1. SEROQUEL [Suspect]
     Route: 048
  2. SEROQUEL [Suspect]
     Indication: BIPOLAR DISORDER
     Route: 048
  3. SEROQUEL [Suspect]
     Route: 048
  4. SEROQUEL [Suspect]
     Route: 048
  5. SEROQUEL [Suspect]
     Indication: ANXIETY
     Route: 048
  6. SEROQUEL [Suspect]
     Indication: PSYCHOTIC DISORDER
     Route: 048
  7. SEROQUEL [Suspect]
     Indication: INSOMNIA
     Route: 048
  8. SEROQUEL [Suspect]
     Route: 048
  9. SEROQUEL [Suspect]
     Indication: POST-TRAUMATIC STRESS DISORDER
     Route: 048
  10. SEROQUEL [Suspect]
     Route: 048

REACTIONS (13)
  - THIRST [None]
  - ACTIVITIES OF DAILY LIVING IMPAIRED [None]
  - SPEECH DISORDER [None]
  - DRUG DOSE OMISSION [None]
  - TREMOR [None]
  - INSOMNIA [None]
  - OFF LABEL USE [None]
  - NERVOUSNESS [None]
  - PANIC ATTACK [None]
  - APPARENT DEATH [None]
  - HYPOKINESIA [None]
  - SOMNOLENCE [None]
  - MENTAL IMPAIRMENT [None]
